FAERS Safety Report 14100673 (Version 1)
Quarter: 2017Q4

REPORT INFORMATION
  Report Type: Spontaneous
  Country: DE (occurrence: DE)
  Receive Date: 20171018
  Receipt Date: 20171018
  Transmission Date: 20180321
  Serious: Yes (Other)
  Sender: FDA-Public Use
  Company Number: DE-BAXTER-2017BAX033902

PATIENT
  Age: 54 Year
  Sex: Female
  Weight: 45 kg

DRUGS (6)
  1. ISOTONISCHE KOCHSALZL?SUNG BAXTER 9 MG/ML (0,9 %) INFUSIONSL?SUNG [Suspect]
     Active Substance: SODIUM CHLORIDE
     Indication: VEHICLE SOLUTION USE
     Dosage: 1 AMPOULE OF ADDEL N COMPOUNDED WITH 0.9% NACL, INFUSION INTO THE LEFT ARM
     Route: 042
     Dates: start: 20170919, end: 2017
  2. IMMUNOGLOBULIN (IMMUNOGLOBULIN HUMAN NORMAL) [Concomitant]
     Active Substance: HUMAN IMMUNOGLOBULIN G
     Indication: CHRONIC FATIGUE SYNDROME
     Dosage: INFUSIONS
     Route: 065
  3. FRESUBIN [Concomitant]
     Active Substance: AMINO ACIDS\DEXTROSE\ELECTROLYTES NOS\SOYBEAN OIL\VITAMINS
     Indication: PRODUCT USED FOR UNKNOWN INDICATION
     Route: 065
  4. ADDEL N [Suspect]
     Active Substance: UNSPECIFIED INGREDIENT
     Indication: CACHEXIA
     Dosage: 1 AMPOULE OF ADDEL N COMPOUNDED WITH 0.9% NACL, INFUSION INTO THE LEFT ARM
     Route: 042
     Dates: start: 20170919, end: 2017
  5. GLUTATHIONE [Suspect]
     Active Substance: GLUTATHIONE
     Indication: PRODUCT USED FOR UNKNOWN INDICATION
     Dosage: INFUSION
     Route: 065
  6. ADDEL TRACE [Concomitant]
     Active Substance: CHROMIC CATION\CUPRIC CATION\FERROUS CATION\FLUORIDE ION\IODIDE ION\MANGANESE CATION (2+)\SODIUM SELENIDE\ZINC CATION
     Indication: PRODUCT USED FOR UNKNOWN INDICATION
     Dosage: NOT FURTHER SPECIFIED WHEN AND FOR HOW LONG THE PATIENT USED ADDEL TRACE AND WELL TOLERATED FOR THE
     Route: 065

REACTIONS (2)
  - Burning sensation [Recovering/Resolving]
  - Infusion site thrombosis [Recovering/Resolving]

NARRATIVE: CASE EVENT DATE: 201709
